FAERS Safety Report 9325604 (Version 1)
Quarter: 2013Q2

REPORT INFORMATION
  Report Type: Spontaneous
  Country: US (occurrence: None)
  Receive Date: 20130531
  Receipt Date: 20130531
  Transmission Date: 20140414
  Serious: No
  Sender: FDA-Public Use
  Company Number: None

PATIENT
  Age: 63 Year
  Sex: Male
  Weight: 129.4 kg

DRUGS (1)
  1. DABIGATRAN [Suspect]
     Dates: start: 20111118, end: 20120118

REACTIONS (1)
  - Headache [None]
